FAERS Safety Report 13178031 (Version 1)
Quarter: 2017Q1

REPORT INFORMATION
  Report Type: Spontaneous
  Country: US (occurrence: US)
  Receive Date: 20170202
  Receipt Date: 20170202
  Transmission Date: 20170428
  Serious: No
  Sender: FDA-Public Use
  Company Number: US-AUROBINDO-AUR-APL-2016-01077

PATIENT
  Sex: Female

DRUGS (1)
  1. CEFDINIR ORAL SUSPENSION [Suspect]
     Active Substance: CEFDINIR
     Indication: PRODUCT USED FOR UNKNOWN INDICATION
     Dosage: UNK
     Route: 048

REACTIONS (3)
  - Malaise [Not Recovered/Not Resolved]
  - Product physical issue [Not Recovered/Not Resolved]
  - Product taste abnormal [Not Recovered/Not Resolved]
